FAERS Safety Report 14016854 (Version 3)
Quarter: 2017Q4

REPORT INFORMATION
  Report Type: Spontaneous
  Country: US (occurrence: US)
  Receive Date: 20170927
  Receipt Date: 20171130
  Transmission Date: 20180321
  Serious: Yes (Hospitalization)
  Sender: FDA-Public Use
  Company Number: US-ASTELLAS-2017US038232

PATIENT
  Age: 87 Year
  Sex: Male

DRUGS (1)
  1. XTANDI [Suspect]
     Active Substance: ENZALUTAMIDE
     Indication: PROSTATE CANCER METASTATIC
     Route: 048
     Dates: start: 20170908

REACTIONS (6)
  - Diarrhoea [Unknown]
  - Ill-defined disorder [Unknown]
  - Dizziness [Unknown]
  - Vomiting [Unknown]
  - Pleurisy [Unknown]
  - Nausea [Unknown]

NARRATIVE: CASE EVENT DATE: 20170913
